FAERS Safety Report 8510065-3 (Version None)
Quarter: 2012Q3

REPORT INFORMATION
  Report Type: 
  Country: None (occurrence: None)
  Receive Date: 20120713
  Receipt Date: 20120629
  Transmission Date: 20120928
  Serious: Yes (Other)
  Sender: FDA-Public Use
  Company Number: US-ARROW-2012-11320

PATIENT
  Sex: Male
  Weight: 68 kg

DRUGS (3)
  1. FENTANYL-75 [Suspect]
     Indication: PAIN
  2. FENTANYL-75 [Suspect]
     Indication: BACK PAIN
     Dosage: ONE PATCH EVERY 72 HOURS
     Route: 062
     Dates: start: 20120617
  3. FENTANYL-75 [Suspect]
     Indication: OSTEOPOROSIS

REACTIONS (5)
  - DIARRHOEA [None]
  - SUICIDAL IDEATION [None]
  - VOMITING [None]
  - ABDOMINAL PAIN UPPER [None]
  - DYSPNOEA [None]
